FAERS Safety Report 8923209 (Version 1)
Quarter: 2012Q4

REPORT INFORMATION
  Report Type: Spontaneous
  Country: US (occurrence: None)
  Receive Date: 20121115
  Receipt Date: 20121115
  Transmission Date: 20130627
  Serious: Yes (Other)
  Sender: FDA-Public Use
  Company Number: B0842662A

PATIENT
  Age: 10 Year
  Sex: Female

DRUGS (5)
  1. ZOFRAN [Suspect]
     Route: 042
  2. PROPOFOL [Suspect]
  3. MIDAZOLAM [Concomitant]
  4. SEVOFLURANE [Concomitant]
  5. ALFENTANIL HYDROCHLORIDE [Concomitant]

REACTIONS (2)
  - Dystonia [None]
  - Post procedural complication [None]
